FAERS Safety Report 25802592 (Version 1)
Quarter: 2025Q3

REPORT INFORMATION
  Report Type: Report from Study
  Country: CO (occurrence: CO)
  Receive Date: 20250915
  Receipt Date: 20250915
  Transmission Date: 20251020
  Serious: Yes (Other)
  Sender: UCB
  Company Number: CO-UCBSA-2025056050

PATIENT
  Age: 65 Year
  Sex: Female

DRUGS (1)
  1. CERTOLIZUMAB PEGOL [Suspect]
     Active Substance: CERTOLIZUMAB PEGOL
     Indication: Rheumatoid arthritis
     Route: 058
     Dates: start: 20190808, end: 20250620

REACTIONS (4)
  - Pneumonia [Not Recovered/Not Resolved]
  - Therapy interrupted [Unknown]
  - Product dispensing issue [Unknown]
  - Off label use [Unknown]

NARRATIVE: CASE EVENT DATE: 20190808
